FAERS Safety Report 23191233 (Version 4)
Quarter: 2024Q4

REPORT INFORMATION
  Report Type: Spontaneous
  Country: CA (occurrence: CA)
  Receive Date: 20231116
  Receipt Date: 20241210
  Transmission Date: 20250115
  Serious: Yes (Other)
  Sender: PFIZER
  Company Number: CA-PFIZER INC-202300363346

PATIENT
  Age: 55 Year
  Sex: Female

DRUGS (1)
  1. ABRILADA [Suspect]
     Active Substance: ADALIMUMAB-AFZB
     Indication: Crohn^s disease
     Dosage: 40 MG, WEEKLY
     Route: 058
     Dates: start: 20220416, end: 20231107

REACTIONS (3)
  - Urinary tract infection [Recovered/Resolved]
  - Intestinal resection [Unknown]
  - Off label use [Unknown]

NARRATIVE: CASE EVENT DATE: 20220416
